FAERS Safety Report 23693227 (Version 1)
Quarter: 2024Q2

REPORT INFORMATION
  Report Type: Spontaneous
  Country: CN (occurrence: CN)
  Receive Date: 20240401
  Receipt Date: 20240401
  Transmission Date: 20240715
  Serious: Yes (Disabling)
  Sender: FDA-Public Use
  Company Number: CN-PFIZER INC-PV202400042152

PATIENT
  Age: 57 Year
  Sex: Female
  Weight: 50 kg

DRUGS (1)
  1. SOLU-MEDROL [Suspect]
     Active Substance: METHYLPREDNISOLONE SODIUM SUCCINATE
     Indication: Drug therapy
     Dosage: 40 MG, 1X/DAY
     Route: 041
     Dates: start: 20240308, end: 20240314

REACTIONS (3)
  - Chorioretinal disorder [Recovering/Resolving]
  - Vision blurred [Recovering/Resolving]
  - Xanthopsia [Recovering/Resolving]

NARRATIVE: CASE EVENT DATE: 20240313
